FAERS Safety Report 14159249 (Version 3)
Quarter: 2017Q4

REPORT INFORMATION
  Report Type: Report from Study
  Country: CA (occurrence: CA)
  Receive Date: 20171103
  Receipt Date: 20171119
  Transmission Date: 20180321
  Serious: No
  Sender: FDA-Public Use
  Company Number: CA-BIOGEN-2017BV000391

PATIENT
  Age: 4 Year
  Sex: Male
  Weight: 14.4 kg

DRUGS (2)
  1. ELOCTATE [Suspect]
     Active Substance: (1-743)-(1638-2332)-BLOOD-COAGULATION FACTOR VIII (SYNTHETIC HUMAN) FUSION PROTEIN WITH IMMUNOGLOBULIN G1 (SYNTHETIC HUMAN FC DOMAIN FRAGMENT), (1444-6^),(1447-9^)-BIS(DISULFIDE) WITH IMMUNOGLOBULIN G1 (SYNTHETIC HUMAN FC DOMAIN FRAGMENT)
     Indication: PROPHYLAXIS
  2. ELOCTATE [Suspect]
     Active Substance: (1-743)-(1638-2332)-BLOOD-COAGULATION FACTOR VIII (SYNTHETIC HUMAN) FUSION PROTEIN WITH IMMUNOGLOBULIN G1 (SYNTHETIC HUMAN FC DOMAIN FRAGMENT), (1444-6^),(1447-9^)-BIS(DISULFIDE) WITH IMMUNOGLOBULIN G1 (SYNTHETIC HUMAN FC DOMAIN FRAGMENT)
     Indication: FACTOR VIII DEFICIENCY
     Route: 042

REACTIONS (4)
  - Injury [Recovered/Resolved]
  - Eye swelling [Recovered/Resolved]
  - Superficial injury of eye [Recovered/Resolved]
  - Eye contusion [Recovered/Resolved]

NARRATIVE: CASE EVENT DATE: 20171024
